FAERS Safety Report 24582816 (Version 2)
Quarter: 2024Q4

REPORT INFORMATION
  Report Type: Report from Study
  Country: CA (occurrence: CA)
  Receive Date: 20241106
  Receipt Date: 20241107
  Transmission Date: 20250114
  Serious: Yes (Other)
  Sender: SANDOZ
  Company Number: CA-SANDOZ-SDZ2024CA092332

PATIENT
  Sex: Female

DRUGS (1)
  1. HYRIMOZ [Suspect]
     Active Substance: ADALIMUMAB-ADAZ
     Indication: Ankylosing spondylitis
     Dosage: 40 MG, BIWEEKLY
     Route: 058
     Dates: start: 20240730

REACTIONS (3)
  - Ankylosing spondylitis [Unknown]
  - COVID-19 [Unknown]
  - Therapeutic product effect incomplete [Unknown]
